FAERS Safety Report 9689304 (Version 2)
Quarter: 2013Q4

REPORT INFORMATION
  Report Type: Spontaneous
  Country: IT (occurrence: IT)
  Receive Date: 20131114
  Receipt Date: 20131126
  Transmission Date: 20140711
  Serious: Yes (Hospitalization)
  Sender: FDA-Public Use
  Company Number: IT-TEVA-443800ISR

PATIENT
  Age: 57 Year
  Sex: Male

DRUGS (8)
  1. CISPLATINO TEVA ITALIA [Suspect]
     Indication: ADENOCARCINOMA GASTRIC
     Dosage: 135 MILLIGRAM DAILY;
     Route: 042
     Dates: start: 20130927, end: 20131023
  2. FLUOROURACILE TEVA [Suspect]
     Indication: ADENOCARCINOMA GASTRIC
     Dosage: 6890 MILLIGRAM DAILY;
     Route: 042
     Dates: start: 20130927, end: 20131023
  3. DOCETAXEL ACCORD [Suspect]
     Indication: ADENOCARCINOMA GASTRIC
     Dosage: 135 MILLIGRAM DAILY; CONCENTRATE FOR SOLUTION FOR INFUSION. DAILY DOSE: 135 MG
     Route: 042
     Dates: start: 20130927, end: 20131023
  4. APREPITANT [Concomitant]
     Dosage: FIRST DAY: 125MG
  5. APREPITANT [Concomitant]
     Dosage: SECOND AND THIRD DAYS: 80MG
  6. DESAMETASONE FOSFATO HOSPITA [Concomitant]
     Dosage: 12 MILLIGRAM DAILY;
  7. ZARZIO [Concomitant]
     Indication: COLONY STIMULATING FACTOR PROPHYLAXIS
     Dosage: 1 DOSAGE FORMS DAILY;
     Route: 058
     Dates: start: 20131017, end: 20131023
  8. ALOXI [Concomitant]
     Dosage: 250 MICROGRAM DAILY;
     Route: 042

REACTIONS (4)
  - Nausea [Recovered/Resolved]
  - Vomiting [Recovered/Resolved]
  - Stomatitis [Recovered/Resolved]
  - Neutropenia [Recovered/Resolved]
